FAERS Safety Report 6550374-0 (Version None)
Quarter: 2010Q1

REPORT INFORMATION
  Report Type: 
  Country: None (occurrence: None)
  Receive Date: 20100125
  Receipt Date: 20100113
  Transmission Date: 20100710
  Serious: Yes (Hospitalization)
  Sender: FDA-Public Use
  Company Number: JP-AMGEN-US379292

PATIENT
  Sex: Male
  Weight: 50 kg

DRUGS (16)
  1. ENBREL [Suspect]
     Indication: RHEUMATOID ARTHRITIS
     Route: 058
     Dates: start: 20070711
  2. PROGRAF [Suspect]
     Indication: RHEUMATOID ARTHRITIS
     Route: 048
     Dates: start: 20080414, end: 20080509
  3. METHOTREXATE [Suspect]
     Indication: RHEUMATOID ARTHRITIS
     Dosage: UNKNOWN
     Route: 048
     Dates: start: 20080414, end: 20080509
  4. METHOTREXATE [Suspect]
     Dosage: UNKNOWN
     Route: 048
     Dates: start: 20080523
  5. FOLIAMIN [Concomitant]
     Route: 048
     Dates: start: 20080414
  6. PREDNISOLONE [Concomitant]
     Indication: RHEUMATOID ARTHRITIS
     Dosage: 10 MG
     Route: 048
     Dates: start: 20070306
  7. PREDNISOLONE [Concomitant]
     Dosage: 20 MG
     Route: 048
     Dates: end: 20070428
  8. PREDNISOLONE [Concomitant]
     Dosage: 30 MG
     Route: 048
     Dates: start: 20070428
  9. MICARDIS [Concomitant]
     Indication: HYPERTENSION
     Route: 048
     Dates: start: 20080414
  10. VOLTAREN [Concomitant]
     Indication: RHEUMATOID ARTHRITIS
     Route: 048
     Dates: start: 20080414
  11. OMEPRAL [Concomitant]
     Route: 048
     Dates: start: 20080414
  12. LOXONIN [Concomitant]
     Indication: RHEUMATOID ARTHRITIS
     Dosage: 60 MG
     Route: 048
     Dates: start: 20080414
  13. MUCOSTA [Concomitant]
     Dosage: 100 MG
     Route: 048
     Dates: start: 20080414
  14. BONALON [Concomitant]
     Indication: OSTEOPOROSIS
     Route: 048
     Dates: start: 20080414
  15. CLARITH [Concomitant]
     Route: 048
     Dates: start: 20080414
  16. ADALAT [Concomitant]
     Indication: HYPERTENSION
     Route: 048
     Dates: start: 20080414

REACTIONS (1)
  - HERPES ZOSTER [None]
